FAERS Safety Report 4512839-2 (Version None)
Quarter: 2004Q4

REPORT INFORMATION
  Report Type: 
  Country: None (occurrence: None)
  Receive Date: 20041119
  Receipt Date: 20041119
  Transmission Date: 20050328
  Serious: Yes (Congenital Anomaly)
  Sender: FDA-Public Use
  Company Number: None

PATIENT
  Sex: Male
  Weight: 113.3993 kg

DRUGS (2)
  1. CELEBREX [Suspect]
     Indication: ARTHRALGIA
     Dosage: 1 CAP 2X DAILY 4 A WK ORAL
     Route: 048
     Dates: start: 20040201, end: 20041101
  2. CELEBREX [Suspect]
     Dosage: THEN 1 CAP 1X DAILY ORAL
     Route: 048

REACTIONS (4)
  - CARDIAC DISORDER [None]
  - CHEST PAIN [None]
  - EXTRASYSTOLES [None]
  - SINUS ARRHYTHMIA [None]
